FAERS Safety Report 15074756 (Version 1)
Quarter: 2018Q2

REPORT INFORMATION
  Report Type: Report from Study
  Country: US (occurrence: US)
  Receive Date: 20180627
  Receipt Date: 20180627
  Transmission Date: 20180711
  Serious: No
  Sender: FDA-Public Use
  Company Number: US-SAOL THERAPEUTICS-2017SAO01169

PATIENT

DRUGS (15)
  1. CLONIDINE. [Suspect]
     Active Substance: CLONIDINE
     Dosage: 114.61 ?G, \DAY
     Route: 037
     Dates: end: 20161207
  2. DROPERIDOL. [Suspect]
     Active Substance: DROPERIDOL
     Dosage: 130.01 ?G, \DAY
     Route: 037
     Dates: start: 20161207
  3. COMPOUNDED BACLOFEN [Suspect]
     Active Substance: BACLOFEN
     Dosage: 208.18 ?G, \DAY
     Route: 037
  4. DILAUDID [Suspect]
     Active Substance: HYDROMORPHONE HYDROCHLORIDE
     Dosage: 1.249 MG, \DAY
     Route: 037
  5. COMPOUNDED BACLOFEN [Suspect]
     Active Substance: BACLOFEN
     Dosage: 325.03 ?G, \DAY
     Route: 037
     Dates: start: 20161207
  6. BUPIVACAINE. [Suspect]
     Active Substance: BUPIVACAINE
     Dosage: 19.502 MG, \DAY
     Route: 037
     Dates: start: 20161207
  7. DILAUDID [Suspect]
     Active Substance: HYDROMORPHONE HYDROCHLORIDE
     Dosage: 1.950 MG, \DAY
     Route: 037
     Dates: start: 20161207
  8. BUPIVACAINE. [Suspect]
     Active Substance: BUPIVACAINE
     Dosage: 12.491 MG, \DAY
     Route: 037
  9. DROPERIDOL. [Suspect]
     Active Substance: DROPERIDOL
     Dosage: 114.61 ?G, \DAY
     Route: 037
     Dates: end: 20161207
  10. BUPIVACAINE. [Suspect]
     Active Substance: BUPIVACAINE
     Dosage: 17.192 MG, \DAY
     Route: 037
     Dates: end: 20161207
  11. CLONIDINE. [Suspect]
     Active Substance: CLONIDINE
     Dosage: 83.27 ?G, \DAY
     Route: 037
  12. CLONIDINE. [Suspect]
     Active Substance: CLONIDINE
     Dosage: 130.01 ?G, \DAY
     Route: 037
     Dates: start: 20161207
  13. DROPERIDOL. [Suspect]
     Active Substance: DROPERIDOL
     Dosage: 83.27 ?G, \DAY
     Route: 037
  14. COMPOUNDED BACLOFEN [Suspect]
     Active Substance: BACLOFEN
     Dosage: 286.53 ?G, \DAY
     Route: 037
     Dates: end: 20161207
  15. DILAUDID [Suspect]
     Active Substance: HYDROMORPHONE HYDROCHLORIDE
     Dosage: 1.719 MG, \DAY
     Route: 037
     Dates: end: 20161207

REACTIONS (4)
  - Heart rate decreased [Not Recovered/Not Resolved]
  - Headache [Not Recovered/Not Resolved]
  - Blood pressure decreased [Not Recovered/Not Resolved]
  - Fear [Not Recovered/Not Resolved]

NARRATIVE: CASE EVENT DATE: 20170124
